FAERS Safety Report 24756335 (Version 2)
Quarter: 2025Q1

REPORT INFORMATION
  Report Type: Spontaneous
  Country: US (occurrence: US)
  Receive Date: 20241220
  Receipt Date: 20250128
  Transmission Date: 20250408
  Serious: Yes (Other)
  Sender: NOVO NORDISK
  Company Number: US-NOVOPROD-1337466

PATIENT
  Age: 72 Year
  Sex: Male

DRUGS (2)
  1. FIASP [Suspect]
     Active Substance: INSULIN ASPART
     Indication: Type 2 diabetes mellitus
     Route: 058
     Dates: start: 2023
  2. FIASP [Suspect]
     Active Substance: INSULIN ASPART
     Route: 058

REACTIONS (1)
  - Cataract operation [Not Recovered/Not Resolved]

NARRATIVE: CASE EVENT DATE: 20241029
